FAERS Safety Report 13717964 (Version 2)
Quarter: 2017Q3

REPORT INFORMATION
  Report Type: Spontaneous
  Country: JP (occurrence: JP)
  Receive Date: 20170705
  Receipt Date: 20170711
  Transmission Date: 20171127
  Serious: Yes (Hospitalization, Other)
  Sender: FDA-Public Use
  Company Number: JP-BRISTOL-MYERS SQUIBB COMPANY-BMS-2017-059848

PATIENT
  Age: 50 Year
  Sex: Female

DRUGS (1)
  1. OPDIVO [Suspect]
     Active Substance: NIVOLUMAB
     Indication: NON-SMALL CELL LUNG CANCER
     Dosage: 150 MG, Q2WK
     Route: 041
     Dates: start: 20160318

REACTIONS (2)
  - Pericardial effusion [Recovered/Resolved]
  - Tumour pseudoprogression [Unknown]

NARRATIVE: CASE EVENT DATE: 20160524
